FAERS Safety Report 15709015 (Version 2)
Quarter: 2019Q3

REPORT INFORMATION
  Report Type: Spontaneous
  Country: CA (occurrence: CA)
  Receive Date: 20181211
  Receipt Date: 20190723
  Transmission Date: 20191004
  Serious: Yes (Death)
  Sender: FDA-Public Use
  Company Number: CA-TEVA-2018-CA-986695

PATIENT
  Age: 71 Year
  Sex: Male
  Weight: 83 kg

DRUGS (8)
  1. RAMIPRIL. [Concomitant]
     Active Substance: RAMIPRIL
  2. ULORIC [Concomitant]
     Active Substance: FEBUXOSTAT
  3. SILDENAFIL CITRATE. [Suspect]
     Active Substance: SILDENAFIL CITRATE
     Indication: PULMONARY HYPERTENSION
     Route: 048
  4. CHYMOTRYPSIN/MAGNESIUM PHOSPHATE MONOBASIC/MAGNESIUM SUCCINATE/PYRIDOX [Concomitant]
  5. LEVOTHYROXINE SODIUM. [Concomitant]
     Active Substance: LEVOTHYROXINE SODIUM
  6. VITAMIN C [Concomitant]
     Active Substance: ASCORBIC ACID
  7. ASA [Concomitant]
     Active Substance: ASPIRIN
  8. FUROSEMIDE. [Concomitant]
     Active Substance: FUROSEMIDE

REACTIONS (1)
  - Death [Fatal]
